FAERS Safety Report 6167246-6 (Version None)
Quarter: 2009Q2

REPORT INFORMATION
  Report Type: 
  Country: None (occurrence: None)
  Receive Date: 20090424
  Receipt Date: 20090413
  Transmission Date: 20091009
  Serious: Yes (Other)
  Sender: FDA-Public Use
  Company Number: FR-GENENTECH-281466

PATIENT
  Age: 74 Year
  Sex: Female

DRUGS (4)
  1. RITUXIMAB [Suspect]
     Indication: ANAEMIA HAEMOLYTIC AUTOIMMUNE
     Dosage: 375 MG/M2, 1/WEEK
     Route: 042
  2. METHYLPREDNISOLONE 4MG TAB [Suspect]
     Indication: PREMEDICATION
     Dosage: 60 MG, UNK
     Route: 042
  3. METHYLPREDNISOLONE 4MG TAB [Suspect]
     Indication: ANAEMIA HAEMOLYTIC AUTOIMMUNE
  4. DEXCHLORPHENIRAMINE [Suspect]
     Indication: PREMEDICATION
     Dosage: 5 MG, UNK
     Route: 042

REACTIONS (1)
  - NEUTROPENIA [None]
